FAERS Safety Report 12782783 (Version 3)
Quarter: 2017Q4

REPORT INFORMATION
  Report Type: Report from Study
  Country: US (occurrence: US)
  Receive Date: 20160927
  Receipt Date: 20171012
  Transmission Date: 20180320
  Serious: No
  Sender: FDA-Public Use
  Company Number: PHEH2016US024541

PATIENT
  Age: 38 Year
  Sex: Female

DRUGS (2)
  1. ENTRESTO [Suspect]
     Active Substance: SACUBITRIL\VALSARTAN
     Indication: CARDIAC FAILURE
     Dosage: 1 DF (49 MG OF SACUBITRIL/ 51 MG OF VALSARTAN), UNK
     Route: 065
  2. ENTRESTO [Suspect]
     Active Substance: SACUBITRIL\VALSARTAN
     Dosage: 1 DF (24 MG OF SACUBITRIL/ 26 MG OF VALSARTAN), TWICE DAILY WITH AN ADDITIONAL HALF PILL IN THE EVEN
     Route: 048
     Dates: start: 20160701

REACTIONS (8)
  - Drug effect delayed [Recovering/Resolving]
  - Gait disturbance [Unknown]
  - Fatigue [Recovering/Resolving]
  - Energy increased [Unknown]
  - Anger [Unknown]
  - Hypotension [Unknown]
  - Wrong technique in product usage process [Not Recovered/Not Resolved]
  - Exercise tolerance decreased [Unknown]

NARRATIVE: CASE EVENT DATE: 20160701
